FAERS Safety Report 17010354 (Version 2)
Quarter: 2019Q4

REPORT INFORMATION
  Report Type: Report from Study
  Country: CN (occurrence: CN)
  Receive Date: 20191108
  Receipt Date: 20191114
  Transmission Date: 20200122
  Serious: Yes (Life-Threatening)
  Sender: FDA-Public Use
  Company Number: CN-PFIZER INC-2019476831

PATIENT
  Age: 67 Year
  Sex: Male
  Weight: 63 kg

DRUGS (17)
  1. ADEMETIONINE 1,4-BUTANEDISULFONATE [Concomitant]
     Dosage: 1000 UNK, UNK
     Route: 042
     Dates: start: 20191101
  2. INSULIN ASPART [Concomitant]
     Active Substance: INSULIN ASPART
     Dosage: 8 IU, 1X/DAY
     Route: 058
     Dates: start: 20191013
  3. AZACITIDINE. [Suspect]
     Active Substance: AZACITIDINE
     Indication: ACUTE MYELOID LEUKAEMIA
     Dosage: 126 MG, 1X/DAY(100MG/M2)
     Route: 058
     Dates: start: 20191011, end: 20191017
  4. ADEMETIONINE 1,4-BUTANEDISULFONATE [Concomitant]
     Indication: BLOOD BILIRUBIN INCREASED
     Dosage: 1000 MG, 1X/DAY
     Route: 042
     Dates: start: 20191018, end: 20191020
  5. FAT EMULSION NOS [Concomitant]
     Active Substance: EGG PHOSPHOLIPIDS\SAFFLOWER OIL\SOYBEAN OIL
     Indication: NUTRITIONAL SUPPLEMENTATION
     Dosage: 250 ML, SINGLE
     Route: 042
     Dates: start: 20191102, end: 20191103
  6. ENTERAL NUTRITIONAL SUSPENSION (TPF) [Concomitant]
     Indication: NUTRITIONAL SUPPLEMENTATION
     Dosage: 500 ML, SINGLE
     Route: 048
     Dates: start: 20191102, end: 20191102
  7. GLYCEROL FRUCTOSE AND SODIUM CHLORIDE [Concomitant]
     Indication: NUTRITIONAL SUPPLEMENTATION
     Dosage: 250 ML, SINGLE
     Route: 042
     Dates: start: 20191101, end: 20191101
  8. MAGNESIUM CHLORIDE. [Concomitant]
     Active Substance: MAGNESIUM CHLORIDE
     Indication: MINERAL SUPPLEMENTATION
     Dosage: 15 ML, SINGLE
     Route: 042
     Dates: start: 20191102, end: 20191102
  9. INSULIN ASPART [Concomitant]
     Active Substance: INSULIN ASPART
     Indication: DIABETES MELLITUS
     Dosage: 6 IU, 1X/DAY
     Route: 058
     Dates: start: 20191011, end: 20191012
  10. INSULIN [Concomitant]
     Active Substance: INSULIN NOS
     Dosage: 6 IU, 3X/DAY
     Route: 058
     Dates: start: 20191010, end: 20191010
  11. INSULIN GLARGINE [Concomitant]
     Active Substance: INSULIN GLARGINE
     Indication: DIABETES MELLITUS
     Dosage: 8 IU, 1X/DAY
     Route: 058
     Dates: start: 20191011
  12. ADEMETIONINE 1,4-BUTANEDISULFONATE [Concomitant]
     Indication: BLOOD BILIRUBIN INCREASED
     Dosage: 0.5 G, 3X/DAY
     Route: 048
     Dates: start: 20191012, end: 20191018
  13. POTASSIUM CHLORIDE. [Concomitant]
     Active Substance: POTASSIUM CHLORIDE
     Dosage: 15 ML, SINGLE
     Route: 042
     Dates: start: 20191102, end: 20191102
  14. POTASSIUM CHLORIDE. [Concomitant]
     Active Substance: POTASSIUM CHLORIDE
     Indication: MINERAL SUPPLEMENTATION
     Dosage: 10 ML, 2X/DAY
     Route: 042
     Dates: start: 20191102, end: 20191102
  15. INSULIN [Concomitant]
     Active Substance: INSULIN NOS
     Indication: DIABETES MELLITUS
     Dosage: 6 IU, 4X/DAY
     Route: 058
     Dates: start: 20191009, end: 20191009
  16. GLASDEGIB [Suspect]
     Active Substance: GLASDEGIB
     Indication: ACUTE MYELOID LEUKAEMIA
     Dosage: 100 MG, 1X/DAY
     Route: 048
     Dates: start: 20191011, end: 20191031
  17. ADEMETIONINE 1,4-BUTANEDISULFONATE [Concomitant]
     Dosage: 0.5 G, 3X/DAY
     Route: 048
     Dates: start: 20191021, end: 20191101

REACTIONS (1)
  - Metabolic encephalopathy [Recovered/Resolved]

NARRATIVE: CASE EVENT DATE: 20191101
